FAERS Safety Report 7494956-0 (Version None)
Quarter: 2011Q2

REPORT INFORMATION
  Report Type: 
  Country: None (occurrence: None)
  Receive Date: 20110520
  Receipt Date: 20110510
  Transmission Date: 20111010
  Serious: Yes (Life-Threatening, Hospitalization)
  Sender: FDA-Public Use
  Company Number: FR-UCBSA-024276

PATIENT
  Sex: Female
  Weight: 45 kg

DRUGS (12)
  1. MOXIFLOXACIN [Concomitant]
  2. CYCLOSERINE [Concomitant]
  3. ETHAMBUTOL [Concomitant]
  4. FLAGYL [Suspect]
     Route: 048
     Dates: start: 20101110, end: 20101116
  5. PREDNISONE [Concomitant]
  6. ZIAGEN [Concomitant]
  7. PARA AMINOSALICYLIC ACID [Concomitant]
  8. KEPPRA [Suspect]
     Indication: GRAND MAL CONVULSION
     Route: 048
     Dates: start: 20101020, end: 20101124
  9. URBANYL [Suspect]
     Indication: CONVULSION
     Route: 048
     Dates: start: 20101020, end: 20101117
  10. KALETRA [Concomitant]
  11. VIREAD [Concomitant]
  12. VFEND [Suspect]
     Indication: EAR INFECTION
     Route: 048
     Dates: start: 20101018, end: 20101113

REACTIONS (10)
  - OEDEMA [None]
  - TOXIC EPIDERMAL NECROLYSIS [None]
  - EOSINOPHILIA [None]
  - ANTIBIOTIC RESISTANT STAPHYLOCOCCUS TEST POSITIVE [None]
  - PSEUDOMONAL SEPSIS [None]
  - ACUTE RESPIRATORY DISTRESS SYNDROME [None]
  - STEVENS-JOHNSON SYNDROME [None]
  - HISTIOCYTOSIS HAEMATOPHAGIC [None]
  - PNEUMOCOCCAL SEPSIS [None]
  - CLOSTRIDIUM DIFFICILE COLITIS [None]
